FAERS Safety Report 14121736 (Version 2)
Quarter: 2017Q4

REPORT INFORMATION
  Report Type: Report from Study
  Country: JP (occurrence: JP)
  Receive Date: 20171024
  Receipt Date: 20171102
  Transmission Date: 20180321
  Serious: Yes (Life-Threatening, Hospitalization, Disabling)
  Sender: FDA-Public Use
  Company Number: JP-DSJP-DSJ-2017-148593

PATIENT

DRUGS (12)
  1. ELIQUIS [Concomitant]
     Active Substance: APIXABAN
     Dosage: 5MG/DAY
     Route: 048
     Dates: start: 20160630, end: 20160727
  2. ATENOLOL. [Concomitant]
     Active Substance: ATENOLOL
     Dosage: 25MG/DAY
     Route: 048
     Dates: end: 20171018
  3. ALLOPURINOL. [Concomitant]
     Active Substance: ALLOPURINOL
     Dosage: 100MG/DAY
     Route: 048
     Dates: end: 20171018
  4. AMLODIPINE                         /00972402/ [Concomitant]
     Active Substance: AMLODIPINE BESYLATE
     Dosage: 5MG/DAY
     Route: 048
     Dates: end: 20171018
  5. LANSOPRAZOLE. [Concomitant]
     Active Substance: LANSOPRAZOLE
     Dosage: 15MG/DAY
     Route: 048
     Dates: end: 20171018
  6. HALFDIGOXIN [Concomitant]
     Active Substance: DIGOXIN
     Indication: ATRIAL FIBRILLATION
     Dosage: 0.125MG/DAY
     Route: 042
     Dates: end: 20171018
  7. BEPRICOR [Concomitant]
     Active Substance: BEPRIDIL
     Indication: ATRIAL FIBRILLATION
     Dosage: 50MG/DAY
     Route: 048
     Dates: end: 20160810
  8. ELIQUIS [Concomitant]
     Active Substance: APIXABAN
     Dosage: 10MG/DAY
     Route: 048
     Dates: start: 20160509, end: 20160629
  9. CANDESARTAN                        /01349502/ [Concomitant]
     Active Substance: CANDESARTAN
     Dosage: 4MG/DAY
     Route: 048
     Dates: end: 20171018
  10. PRONON [Concomitant]
     Active Substance: PROPAFENONE
     Indication: ATRIAL FIBRILLATION
     Dosage: 300MG/DAY
     Route: 048
     Dates: start: 20160727, end: 20160810
  11. EDOXABAN [Suspect]
     Active Substance: EDOXABAN TOSYLATE
     Indication: ATRIAL FIBRILLATION
     Dosage: 30 MG, QD
     Route: 048
     Dates: start: 20160727, end: 20171018
  12. PRAZAXA [Concomitant]
     Active Substance: DABIGATRAN ETEXILATE MESYLATE
     Dosage: 300MG/DAY
     Route: 048
     Dates: end: 20160215

REACTIONS (2)
  - Cardiac failure congestive [Recovered/Resolved]
  - Melaena [Recovered/Resolved]

NARRATIVE: CASE EVENT DATE: 20171001
